FAERS Safety Report 6379121-2 (Version None)
Quarter: 2009Q3

REPORT INFORMATION
  Report Type: 
  Country: None (occurrence: None)
  Receive Date: 20090923
  Receipt Date: 20090923
  Transmission Date: 20100115
  Serious: No
  Sender: FDA-Public Use
  Company Number: None

PATIENT
  Age: 74 Year
  Sex: Female
  Weight: 86 kg

DRUGS (8)
  1. PAROXETINE HCL [Suspect]
     Indication: DEPRESSION
     Dosage: 20MG PO QDAY
     Route: 048
  2. AMLODIPINE [Concomitant]
  3. ASPIRIN [Concomitant]
  4. ATORVASTATIN [Concomitant]
  5. ENALAPRIL MALEATE [Concomitant]
  6. HYDRALAZINE [Concomitant]
  7. ISONIDE [Concomitant]
  8. METOPROLOL [Concomitant]

REACTIONS (3)
  - FALL [None]
  - MENTAL STATUS CHANGES [None]
  - SOMNOLENCE [None]
